FAERS Safety Report 5419455-9 (Version None)
Quarter: 2007Q3

REPORT INFORMATION
  Report Type: 
  Country: None (occurrence: None)
  Receive Date: 20070820
  Receipt Date: 20070815
  Transmission Date: 20080115
  Serious: Yes (Other)
  Sender: FDA-Public Use
  Company Number: B0483335A

PATIENT
  Age: 44 Year
  Sex: Male

DRUGS (2)
  1. SERETIDE [Suspect]
     Indication: DRUG USE FOR UNKNOWN INDICATION
     Route: 055
     Dates: start: 20070717, end: 20070728
  2. PL [Concomitant]
     Route: 048
     Dates: start: 20070717, end: 20070721

REACTIONS (2)
  - CONVULSION [None]
  - PALPITATIONS [None]
